FAERS Safety Report 21719111 (Version 3)
Quarter: 2022Q4

REPORT INFORMATION
  Report Type: Report from Study
  Country: CA (occurrence: CA)
  Receive Date: 20221213
  Receipt Date: 20221228
  Transmission Date: 20230112
  Serious: Yes (Hospitalization)
  Sender: FDA-Public Use
  Company Number: CA-BIOGEN-2022BI01174738

PATIENT
  Age: 38 Year
  Sex: Male

DRUGS (1)
  1. DALFAMPRIDINE [Suspect]
     Active Substance: DALFAMPRIDINE
     Indication: Gait disturbance
     Route: 050
     Dates: start: 20221119

REACTIONS (2)
  - Multiple sclerosis pseudo relapse [Unknown]
  - Pneumonia [Unknown]

NARRATIVE: CASE EVENT DATE: 20221207
